FAERS Safety Report 11444445 (Version 1)
Quarter: 2015Q3

REPORT INFORMATION
  Report Type: Spontaneous
  Country: US (occurrence: US)
  Receive Date: 20150902
  Receipt Date: 20150902
  Transmission Date: 20151125
  Serious: No
  Sender: FDA-Public Use
  Company Number: US-009507513-1509USA000645

PATIENT
  Age: 70 Year
  Sex: Female

DRUGS (1)
  1. ZETIA [Suspect]
     Active Substance: EZETIMIBE
     Dosage: UNK
     Route: 048
     Dates: start: 2013

REACTIONS (4)
  - Asthenia [Unknown]
  - Wrong technique in product usage process [Unknown]
  - No adverse event [Unknown]
  - Product quality issue [Unknown]
